FAERS Safety Report 4554851-3 (Version None)
Quarter: 2004Q4

REPORT INFORMATION
  Report Type: 
  Country: None (occurrence: None)
  Receive Date: 20041222
  Receipt Date: 20040827
  Transmission Date: 20050328
  Serious: No
  Sender: FDA-Public Use
  Company Number: 208725

PATIENT
  Age: 25 Year
  Sex: Male
  Weight: 99.8 kg

DRUGS (1)
  1. AVASTIN [Suspect]
     Indication: COLON CANCER METASTATIC
     Dosage: 5 MG/KG, Q2W, INTRAVENOUS
     Route: 042
     Dates: start: 20040726, end: 20040826

REACTIONS (2)
  - HEADACHE [None]
  - VISION BLURRED [None]
